FAERS Safety Report 22746666 (Version 2)
Quarter: 2023Q4

REPORT INFORMATION
  Report Type: Spontaneous
  Country: US (occurrence: US)
  Receive Date: 20230725
  Receipt Date: 20231213
  Transmission Date: 20240109
  Serious: Yes (Hospitalization, Other)
  Sender: FDA-Public Use
  Company Number: US-SA-SAC20230724001287

PATIENT
  Age: 68 Year
  Sex: Female

DRUGS (1)
  1. DUPIXENT [Suspect]
     Active Substance: DUPILUMAB
     Indication: Dermatitis atopic
     Dosage: UNK
     Route: 058
     Dates: start: 202303

REACTIONS (10)
  - Cerebrovascular accident [Recovering/Resolving]
  - Knee arthroplasty [Unknown]
  - Speech disorder [Unknown]
  - Stress [Unknown]
  - Rash macular [Recovered/Resolved]
  - Tension [Unknown]
  - Brain fog [Unknown]
  - Muscular weakness [Unknown]
  - Dysgraphia [Unknown]
  - Contusion [Unknown]

NARRATIVE: CASE EVENT DATE: 20230101
